FAERS Safety Report 9905399 (Version 3)
Quarter: 2014Q2

REPORT INFORMATION
  Report Type: Spontaneous
  Country: US (occurrence: US)
  Receive Date: 20140218
  Receipt Date: 20140415
  Transmission Date: 20141212
  Serious: No
  Sender: FDA-Public Use
  Company Number: US-PFIZER INC-2014042555

PATIENT
  Age: 75 Year
  Sex: Female
  Weight: 63.49 kg

DRUGS (4)
  1. LIPITOR [Suspect]
     Indication: BLOOD CHOLESTEROL
     Dosage: 20 MG, DAILY (QHS)
  2. CELEBREX [Suspect]
     Indication: ARTHRALGIA
     Dosage: 200 MG, TWO TIMES A DAY
  3. CELEBREX [Suspect]
     Indication: ARTHRITIS
  4. NEURONTIN [Suspect]
     Dosage: UNK

REACTIONS (2)
  - Hypertension [Unknown]
  - Herpes zoster [Unknown]
